FAERS Safety Report 18100838 (Version 2)
Quarter: 2020Q3

REPORT INFORMATION
  Report Type: Spontaneous
  Country: US (occurrence: US)
  Receive Date: 20200731
  Receipt Date: 20200811
  Transmission Date: 20201103
  Serious: Yes (Hospitalization, Other)
  Sender: FDA-Public Use
  Company Number: US-ASTRAZENECA-2020SE93122

PATIENT
  Age: 18633 Day
  Sex: Male

DRUGS (35)
  1. FARXIGA [Suspect]
     Active Substance: DAPAGLIFLOZIN PROPANEDIOL
     Indication: WEIGHT DECREASED
     Route: 048
     Dates: start: 20160301
  2. AMOXICILLIN. [Concomitant]
     Active Substance: AMOXICILLIN
  3. ATORVASTATIN CALCIUM. [Concomitant]
     Active Substance: ATORVASTATIN CALCIUM
  4. FLUCONAZOLE. [Concomitant]
     Active Substance: FLUCONAZOLE
  5. LISINOPRIL. [Concomitant]
     Active Substance: LISINOPRIL
  6. LACTULOSE. [Concomitant]
     Active Substance: LACTULOSE
  7. SODIUM CHLORIDE. [Concomitant]
     Active Substance: SODIUM CHLORIDE
  8. NALOXONE [Concomitant]
     Active Substance: NALOXONE
  9. FARXIGA [Suspect]
     Active Substance: DAPAGLIFLOZIN PROPANEDIOL
     Indication: TYPE 2 DIABETES MELLITUS
     Route: 048
     Dates: start: 20160125, end: 20180611
  10. FARXIGA [Suspect]
     Active Substance: DAPAGLIFLOZIN PROPANEDIOL
     Indication: WEIGHT DECREASED
     Route: 048
     Dates: start: 20160125, end: 20180611
  11. VANCOMYCIN [Concomitant]
     Active Substance: VANCOMYCIN
  12. BACITRACIN. [Concomitant]
     Active Substance: BACITRACIN
  13. AZITHROMYCIN ANHYDROUS. [Concomitant]
     Active Substance: AZITHROMYCIN ANHYDROUS
  14. TOBRAMYCIN. [Concomitant]
     Active Substance: TOBRAMYCIN
  15. SULFAMETHOXAZOLE [Concomitant]
     Active Substance: SULFAMETHOXAZOLE
  16. INSULIN LISPRO [Concomitant]
     Active Substance: INSULIN LISPRO
  17. MORPHINE SULFATE. [Concomitant]
     Active Substance: MORPHINE SULFATE
  18. ACETAMINOPHEN?CODEINE [Concomitant]
     Active Substance: ACETAMINOPHEN\CODEINE PHOSPHATE
  19. HYDROCORTISONE. [Concomitant]
     Active Substance: HYDROCORTISONE
  20. DIAZEPAM. [Concomitant]
     Active Substance: DIAZEPAM
  21. FENTANYL CITRATE. [Concomitant]
     Active Substance: FENTANYL CITRATE
  22. FLUTICASONE. [Concomitant]
     Active Substance: FLUTICASONE
  23. METFORMIN HCL [Concomitant]
     Active Substance: METFORMIN HYDROCHLORIDE
  24. CLINDAMYCIN. [Concomitant]
     Active Substance: CLINDAMYCIN
  25. KETOROLAC [Concomitant]
     Active Substance: KETOROLAC TROMETHAMINE
  26. FARXIGA [Suspect]
     Active Substance: DAPAGLIFLOZIN PROPANEDIOL
     Indication: TYPE 2 DIABETES MELLITUS
     Route: 048
     Dates: start: 20160301
  27. BYDUREON [Concomitant]
     Active Substance: EXENATIDE
  28. VITAMIN D [Concomitant]
     Active Substance: VITAMIN D NOS
  29. DEXTROSE. [Concomitant]
     Active Substance: DEXTROSE
  30. TRAMADOL. [Concomitant]
     Active Substance: TRAMADOL
  31. HYDRALAZINE [Concomitant]
     Active Substance: HYDRALAZINE HYDROCHLORIDE
  32. JANUVIA [Concomitant]
     Active Substance: SITAGLIPTIN PHOSPHATE
  33. FARXIGA [Suspect]
     Active Substance: DAPAGLIFLOZIN PROPANEDIOL
     Indication: HYPERTENSION
     Route: 048
     Dates: start: 20160125, end: 20180611
  34. FARXIGA [Suspect]
     Active Substance: DAPAGLIFLOZIN PROPANEDIOL
     Indication: HYPERTENSION
     Route: 048
     Dates: start: 20160301
  35. ONDANSETRON [Concomitant]
     Active Substance: ONDANSETRON

REACTIONS (4)
  - Urinary tract infection [Unknown]
  - Fournier^s gangrene [Unknown]
  - Sepsis [Unknown]
  - Scrotal abscess [Unknown]

NARRATIVE: CASE EVENT DATE: 20180611
